FAERS Safety Report 17438373 (Version 1)
Quarter: 2020Q1

REPORT INFORMATION
  Report Type: Spontaneous
  Country: DE (occurrence: DE)
  Receive Date: 20200220
  Receipt Date: 20200220
  Transmission Date: 20200409
  Serious: Yes (Hospitalization, Other)
  Sender: FDA-Public Use
  Company Number: DE-TEVA-2020-DE-1188980

PATIENT
  Age: 86 Year
  Sex: Male

DRUGS (2)
  1. LISINOPRIL. [Suspect]
     Active Substance: LISINOPRIL
     Dates: start: 20200131
  2. SPIRONOLACTON [Suspect]
     Active Substance: SPIRONOLACTONE
     Dates: start: 20200131

REACTIONS (2)
  - Acute kidney injury [Unknown]
  - Hyperkalaemia [Recovering/Resolving]
